FAERS Safety Report 18146520 (Version 2)
Quarter: 2020Q3

REPORT INFORMATION
  Report Type: Report from Study
  Country: IL (occurrence: IL)
  Receive Date: 20200813
  Receipt Date: 20200930
  Transmission Date: 20201103
  Serious: Yes (Other)
  Sender: FDA-Public Use
  Company Number: IL-JNJFOC-20200217123

PATIENT
  Sex: Male

DRUGS (2)
  1. STELARA [Suspect]
     Active Substance: USTEKINUMAB
     Indication: CROHN^S DISEASE
     Route: 058
     Dates: start: 20181004
  2. STELARA [Suspect]
     Active Substance: USTEKINUMAB

REACTIONS (7)
  - Drug ineffective [Not Recovered/Not Resolved]
  - Seizure [Not Recovered/Not Resolved]
  - Inappropriate schedule of product administration [Unknown]
  - Intestinal stenosis [Not Recovered/Not Resolved]
  - Oesophageal achalasia [Unknown]
  - Oesophageal stenosis [Not Recovered/Not Resolved]
  - Crohn^s disease [Not Recovered/Not Resolved]
